FAERS Safety Report 22614135 (Version 1)
Quarter: 2023Q2

REPORT INFORMATION
  Report Type: Report from Study
  Country: US (occurrence: US)
  Receive Date: 20230619
  Receipt Date: 20230619
  Transmission Date: 20230722
  Serious: Yes (Other)
  Sender: FDA-Public Use
  Company Number: US-ABBVIE-5292150

PATIENT
  Age: 54 Year
  Sex: Female

DRUGS (2)
  1. RINVOQ [Suspect]
     Active Substance: UPADACITINIB
     Indication: Product used for unknown indication
     Route: 048
     Dates: start: 20220822, end: 202306
  2. TALTZ [Concomitant]
     Active Substance: IXEKIZUMAB
     Indication: Immunosuppressant drug therapy
     Dates: start: 20200614

REACTIONS (2)
  - Sudden hearing loss [Not Recovered/Not Resolved]
  - Psoriasis [Unknown]

NARRATIVE: CASE EVENT DATE: 20230521
